FAERS Safety Report 6714219-8 (Version None)
Quarter: 2010Q2

REPORT INFORMATION
  Report Type: 
  Country: None (occurrence: None)
  Receive Date: 20100506
  Receipt Date: 20100201
  Transmission Date: 20101027
  Serious: Yes (Other)
  Sender: FDA-Public Use
  Company Number: PHHY2010ES05339

PATIENT
  Age: 73 Year
  Sex: Female

DRUGS (1)
  1. RASILEZ [Suspect]
     Indication: HYPERTENSION
     Dosage: 300 MG, ONCE/SINGLE
     Route: 048

REACTIONS (2)
  - DIARRHOEA [None]
  - SYNCOPE [None]
